FAERS Safety Report 20585051 (Version 1)
Quarter: 2022Q1

REPORT INFORMATION
  Report Type: Spontaneous
  Country: CA (occurrence: CA)
  Receive Date: 20220311
  Receipt Date: 20220311
  Transmission Date: 20220423
  Serious: Yes (Other)
  Sender: FDA-Public Use
  Company Number: CA-PFIZER INC-202200358492

PATIENT

DRUGS (4)
  1. CABERGOLINE [Suspect]
     Active Substance: CABERGOLINE
     Indication: Secretory adenoma of pituitary
     Dosage: UNK
     Route: 065
  2. CABERGOLINE [Suspect]
     Active Substance: CABERGOLINE
     Indication: Acromegaly
  3. LANREOTIDE ACETATE [Suspect]
     Active Substance: LANREOTIDE ACETATE
     Indication: Secretory adenoma of pituitary
     Dosage: 120 MG
     Route: 065
  4. LANREOTIDE ACETATE [Suspect]
     Active Substance: LANREOTIDE ACETATE
     Indication: Acromegaly

REACTIONS (1)
  - Insulin-like growth factor increased [Unknown]
